FAERS Safety Report 6038017-6 (Version None)
Quarter: 2009Q1

REPORT INFORMATION
  Report Type: 
  Country: None (occurrence: None)
  Receive Date: 20090114
  Receipt Date: 20090114
  Transmission Date: 20090719
  Serious: No
  Sender: FDA-Public Use
  Company Number: None

PATIENT
  Sex: Female
  Weight: 90.7194 kg

DRUGS (2)
  1. ACTONEL [Suspect]
     Indication: OSTEOPOROSIS
     Dosage: 150 MG
     Dates: start: 20050101, end: 20070101
  2. BONIVA [Suspect]
     Indication: OSTEOPOROSIS
     Dosage: 150 MG
     Dates: start: 20070101, end: 20080101

REACTIONS (4)
  - BONE PAIN [None]
  - MYALGIA [None]
  - TOOTH DISORDER [None]
  - TOOTH LOSS [None]
